FAERS Safety Report 10749913 (Version 2)
Quarter: 2015Q2

REPORT INFORMATION
  Report Type: Spontaneous
  Country: BR (occurrence: BR)
  Receive Date: 20150129
  Receipt Date: 20150514
  Transmission Date: 20150821
  Serious: Yes (Death, Life-Threatening, Hospitalization, Other)
  Sender: FDA-Public Use
  Company Number: BR-B.I. PHARMACEUTICALS,INC./RIDGEFIELD-2015-BI-04439BR

PATIENT
  Age: 75 Year
  Sex: Female

DRUGS (2)
  1. ADALAT [Concomitant]
     Active Substance: NIFEDIPINE
     Indication: HYPERTENSION
     Route: 048
  2. SPIRIVA [Suspect]
     Active Substance: TIOTROPIUM BROMIDE MONOHYDRATE
     Indication: DYSPNOEA
     Dosage: 2 PUF
     Route: 055
     Dates: start: 201401, end: 201501

REACTIONS (3)
  - Pneumonia aspiration [Fatal]
  - Cardiac arrest [Recovered/Resolved]
  - Oropharyngeal cancer [Not Recovered/Not Resolved]

NARRATIVE: CASE EVENT DATE: 201402
